FAERS Safety Report 24381393 (Version 2)
Quarter: 2024Q4

REPORT INFORMATION
  Report Type: Report from Study
  Country: US (occurrence: US)
  Receive Date: 20241001
  Receipt Date: 20241005
  Transmission Date: 20250114
  Serious: Yes (Other)
  Sender: ROCHE
  Company Number: US-ROCHE-10000089353

PATIENT
  Age: 43 Year
  Sex: Female

DRUGS (1)
  1. EVRYSDI [Suspect]
     Active Substance: RISDIPLAM
     Indication: Spinal muscular atrophy
     Route: 065

REACTIONS (5)
  - Gait inability [Unknown]
  - Product complaint [Unknown]
  - Pancreatitis [Unknown]
  - Drug ineffective [Unknown]
  - Product use complaint [Unknown]
